FAERS Safety Report 16688804 (Version 1)
Quarter: 2019Q4

REPORT INFORMATION
  Report Type: Spontaneous
  Country: US (occurrence: US)
  Receive Date: 20190809
  Receipt Date: 20190809
  Transmission Date: 20200122
  Serious: Yes (Other)
  Sender: FDA-Public Use
  Company Number: None

PATIENT
  Age: 66 Year
  Sex: Male
  Weight: 124.5 kg

DRUGS (12)
  1. LISINOPRIL. [Concomitant]
     Active Substance: LISINOPRIL
  2. PROCHLOPERAZINE MALEATE 10MG [Concomitant]
  3. VITAMIN B COMPLEX [Concomitant]
     Active Substance: CYANOCOBALAMIN\DEXPANTHENOL\NIACINAMIDE\PYRIDOXINE HYDROCHLORIDE\RIBOFLAVIN 5^-PHOSPHATE SODIUM\THIAMINE HYDROCHLORIDE\VITAMIN B COMPLEX
  4. CARVEDILOL 3.125MG [Concomitant]
     Active Substance: CARVEDILOL
  5. WARFARIN 5MG [Concomitant]
     Active Substance: WARFARIN
  6. ASPIRIN 81MG [Concomitant]
     Active Substance: ASPIRIN
  7. CAPECITAABINE [Suspect]
     Active Substance: CAPECITABINE
     Indication: RECTAL CANCER
     Route: 048
     Dates: start: 20190513
  8. VITAMIN C ER 1000MG [Concomitant]
  9. LOPERAMIDE 2MG [Concomitant]
     Active Substance: LOPERAMIDE
  10. MULTI-VITAMIN [Concomitant]
     Active Substance: .ALPHA.-TOCOPHEROL ACETATE, DL-\ASCORBIC ACID\CYANOCOBALAMIN\FLUORIDE ION\FOLIC ACID\NIACIN\PYRIDOXINE\RIBOFLAVIN\THIAMINE\VITAMIN A\VITAMIN D
  11. VITAMIN D 1000 UNITS [Concomitant]
  12. LOMOTIL 2.5-0.025 [Concomitant]

REACTIONS (1)
  - Headache [None]

NARRATIVE: CASE EVENT DATE: 20190809
